FAERS Safety Report 14992550 (Version 1)
Quarter: 2018Q2

REPORT INFORMATION
  Report Type: Spontaneous
  Country: DE (occurrence: DE)
  Receive Date: 20180609
  Receipt Date: 20180609
  Transmission Date: 20180711
  Serious: Yes (Hospitalization)
  Sender: FDA-Public Use
  Company Number: DE-TEVA-2018-DE-904045

PATIENT
  Age: 74 Year
  Sex: Male

DRUGS (5)
  1. RIVAROXABAN [Concomitant]
     Active Substance: RIVAROXABAN
     Dosage: 20 MG, NK
  2. MORPHINE EXTENDED RELEASE [Suspect]
     Active Substance: MORPHINE
     Route: 065
  3. NOVAMINSULFON [Suspect]
     Active Substance: METAMIZOLE
     Route: 065
  4. TILIDINE W/NALOXONE [Suspect]
     Active Substance: NALOXONE HYDROCHLORIDE\TILIDINE HYDROCHLORIDE
     Route: 065
  5. METOPROLOL. [Concomitant]
     Active Substance: METOPROLOL

REACTIONS (3)
  - Cold sweat [Unknown]
  - Circulatory collapse [Unknown]
  - Dizziness [Unknown]
